FAERS Safety Report 18927677 (Version 1)
Quarter: 2021Q1

REPORT INFORMATION
  Report Type: Spontaneous
  Country: FR (occurrence: FR)
  Receive Date: 20210223
  Receipt Date: 20210223
  Transmission Date: 20210420
  Serious: Yes (Hospitalization)
  Sender: FDA-Public Use
  Company Number: FR-MYLANLABS-2021M1010857

PATIENT
  Age: 33 Year
  Sex: Female

DRUGS (10)
  1. HEPARIN [Concomitant]
     Active Substance: HEPARIN SODIUM
     Dosage: 500 INTERNATIONAL UNIT/KILOGRAM, QD
     Route: 040
  2. ZIDOVUDINE. [Concomitant]
     Active Substance: ZIDOVUDINE
     Indication: PROPHYLAXIS AGAINST HIV INFECTION
     Dosage: 300 MILLIGRAM, BID
     Route: 065
  3. ISOSORBIDE DINITRATE. [Suspect]
     Active Substance: ISOSORBIDE DINITRATE
     Indication: VASOSPASM
     Dosage: FIRST?LINE THERAPY
     Route: 042
  4. AMLODIPINE [Suspect]
     Active Substance: AMLODIPINE BESYLATE
     Indication: VASOSPASM
     Dosage: FIRST?LINE THERAPY
     Route: 048
  5. LOPINAVIR/RITONAVIR [Interacting]
     Active Substance: LOPINAVIR\RITONAVIR
     Indication: PROPHYLAXIS AGAINST HIV INFECTION
     Dosage: 1 DOSAGE FORM, BID
     Route: 065
  6. LAMIVUDINE. [Concomitant]
     Active Substance: LAMIVUDINE
     Indication: PROPHYLAXIS AGAINST HIV INFECTION
     Dosage: 150 MILLIGRAM, BID
     Route: 065
  7. QUETIAPINE FUMARATE. [Concomitant]
     Active Substance: QUETIAPINE FUMARATE
     Indication: BIPOLAR DISORDER
     Dosage: 50 MILLIGRAM, QD
     Route: 065
  8. HEPARIN [Concomitant]
     Active Substance: HEPARIN SODIUM
     Indication: ANTICOAGULANT THERAPY
     Dosage: 50 INTERNATIONAL UNIT/KILOGRAM, QD
     Route: 040
  9. DIHYDROERGOTAMINE [Interacting]
     Active Substance: DIHYDROERGOTAMINE
     Indication: ORTHOSTATIC HYPOTENSION
     Dosage: 5 MILLIGRAM, QD
     Route: 065
  10. LITHIUM CARBONATE. [Concomitant]
     Active Substance: LITHIUM CARBONATE
     Indication: BIPOLAR DISORDER
     Dosage: 400 MILLIGRAM, QD
     Route: 065

REACTIONS (1)
  - Drug ineffective [Unknown]
